FAERS Safety Report 11896936 (Version 2)
Quarter: 2016Q1

REPORT INFORMATION
  Report Type: Spontaneous
  Country: US (occurrence: US)
  Receive Date: 20160107
  Receipt Date: 20160321
  Transmission Date: 20160526
  Serious: No
  Sender: FDA-Public Use
  Company Number: US-GLAXOSMITHKLINE-US2016GSK000448

PATIENT
  Age: 19 Year
  Sex: Male

DRUGS (2)
  1. FLONASE [Concomitant]
     Active Substance: FLUTICASONE PROPIONATE
  2. ARNUITY ELLIPTA [Suspect]
     Active Substance: FLUTICASONE FUROATE
     Indication: COUGH
     Dosage: 1 PUFF(S), QD
     Dates: start: 201511

REACTIONS (8)
  - Insomnia [Not Recovered/Not Resolved]
  - Choking sensation [Not Recovered/Not Resolved]
  - Cough [Not Recovered/Not Resolved]
  - Sneezing [Not Recovered/Not Resolved]
  - Underdose [Unknown]
  - Hypersensitivity [Unknown]
  - Upper-airway cough syndrome [Not Recovered/Not Resolved]
  - Product quality issue [Unknown]

NARRATIVE: CASE EVENT DATE: 201512
